FAERS Safety Report 8172432-X (Version None)
Quarter: 2012Q1

REPORT INFORMATION
  Report Type: 
  Country: None (occurrence: None)
  Receive Date: 20120229
  Receipt Date: 20120218
  Transmission Date: 20120608
  Serious: Yes (Disabling, Other)
  Sender: FDA-Public Use
  Company Number: DE-PAR PHARMACEUTICAL, INC-2012SCPR004232

PATIENT

DRUGS (3)
  1. PREDNISONE [Suspect]
     Indication: ACUTE LYMPHOCYTIC LEUKAEMIA
     Dosage: UNK, UNKNOWN
     Route: 065
  2. ASPARAGINASE [Suspect]
     Indication: ACUTE LYMPHOCYTIC LEUKAEMIA
     Dosage: UNK, UNKNOWN
     Route: 065
  3. DEXAMETHASONE [Suspect]
     Indication: ACUTE LYMPHOCYTIC LEUKAEMIA
     Dosage: 10 MG/M2, / DAY
     Route: 065

REACTIONS (4)
  - HEPATOTOXICITY [None]
  - CONDITION AGGRAVATED [None]
  - OSTEOPENIA [None]
  - SUPERIOR SAGITTAL SINUS THROMBOSIS [None]
